FAERS Safety Report 6430392-3 (Version None)
Quarter: 2009Q4

REPORT INFORMATION
  Report Type: 
  Country: None (occurrence: None)
  Receive Date: 20091106
  Receipt Date: 20091026
  Transmission Date: 20100525
  Serious: Yes (Death, Hospitalization)
  Sender: FDA-Public Use
  Company Number: ES-PFIZER INC-2009288776

PATIENT
  Age: 46 Year
  Sex: Male
  Weight: 162 kg

DRUGS (5)
  1. SOMATROPIN [Suspect]
     Indication: HYPOPITUITARISM
     Dosage: 0.8 MG, 1X/DAY
     Route: 058
     Dates: start: 20000228
  2. EUTIROX [Concomitant]
     Dosage: 200 UG, 1X/DAY
     Route: 048
     Dates: start: 19930901
  3. DESMOPRESSIN ACETATE [Concomitant]
     Dosage: 0.2 AT MORNING - 0.1 EVENING -1/2 NIGHT
     Route: 048
     Dates: start: 19930901
  4. DACORTIN [Concomitant]
     Dosage: UNK
     Route: 048
     Dates: start: 19930901
  5. TESTOSTERONE [Concomitant]
     Dosage: UNK
     Route: 030
     Dates: start: 19930901

REACTIONS (2)
  - CAUDA EQUINA SYNDROME [None]
  - DEATH [None]
